FAERS Safety Report 8024218-4 (Version None)
Quarter: 2012Q1

REPORT INFORMATION
  Report Type: 
  Country: None (occurrence: None)
  Receive Date: 20120105
  Receipt Date: 20120101
  Transmission Date: 20120608
  Serious: No
  Sender: FDA-Public Use
  Company Number: PHHY2012US000501

PATIENT

DRUGS (2)
  1. ASPIRIN [Concomitant]
     Dosage: 81 MG, QD
  2. GLEEVEC [Suspect]
     Indication: POLYCYTHAEMIA VERA
     Dosage: 400 MG, DAILY

REACTIONS (1)
  - ASCITES [None]
